FAERS Safety Report 8763160 (Version 1)
Quarter: 2012Q4

REPORT INFORMATION
  Report Type: 
  Country: US (occurrence: US)
  Receive Date: 20120831
  Receipt Date: 20120831
  Transmission Date: 20130627
  Serious: Yes (Other)
  Sender: FDA-Public Use
  Company Number: US-JNJFOC-20120812867

PATIENT
  Age: 46 Year
  Sex: Male
  Weight: 90.72 kg

DRUGS (4)
  1. REMICADE [Suspect]
     Indication: COLITIS ULCERATIVE
     Route: 042
     Dates: start: 20120821
  2. REMICADE [Suspect]
     Indication: COLITIS ULCERATIVE
     Route: 042
     Dates: start: 2008
  3. BENADRYL [Concomitant]
     Indication: PREMEDICATION
     Route: 065
     Dates: start: 2008
  4. TYLENOL [Concomitant]
     Indication: PREMEDICATION
     Route: 065
     Dates: start: 2008

REACTIONS (4)
  - Chest pain [Recovered/Resolved]
  - Infusion site extravasation [Recovered/Resolved]
  - Infusion related reaction [Recovered/Resolved]
  - Infusion site pain [Recovered/Resolved]
